FAERS Safety Report 24274555 (Version 2)
Quarter: 2024Q3

REPORT INFORMATION
  Report Type: Report from Study
  Country: GB (occurrence: GB)
  Receive Date: 20240902
  Receipt Date: 20240917
  Transmission Date: 20241017
  Serious: No
  Sender: SANDOZ
  Company Number: GB-SANDOZ-SDZ2023GB034270

PATIENT
  Sex: Male

DRUGS (2)
  1. HYRIMOZ [Suspect]
     Active Substance: ADALIMUMAB-ADAZ
     Dosage: HYRIMOZ 40MG/0.4ML ,40 MG, QW FORMULATION 40MG/0.4ML
     Route: 058
     Dates: start: 20230824
  2. HYRIMOZ [Suspect]
     Active Substance: ADALIMUMAB-ADAZ
     Indication: Crohn^s disease
     Dosage: 40 MG EOW, FORMULATION 40MG/0.8ML
     Route: 058
     Dates: start: 20230824, end: 20230907

REACTIONS (5)
  - Fear of injection [Unknown]
  - Malaise [Unknown]
  - Seasonal allergy [Unknown]
  - Product dose omission issue [Unknown]
  - Device defective [Unknown]
